FAERS Safety Report 8557684-6 (Version None)
Quarter: 2012Q3

REPORT INFORMATION
  Report Type: 
  Country: None (occurrence: None)
  Receive Date: 20120801
  Receipt Date: 20120723
  Transmission Date: 20120928
  Serious: Yes (Hospitalization)
  Sender: FDA-Public Use
  Company Number: PH-ASTRAZENECA-2012SE51475

PATIENT
  Age: 46 Year
  Sex: Male

DRUGS (1)
  1. VIMOVO [Suspect]
     Indication: BACK PAIN
     Route: 048

REACTIONS (2)
  - RENAL TUBULAR DISORDER [None]
  - HYPERKALAEMIA [None]
